FAERS Safety Report 12361294 (Version 1)
Quarter: 2016Q2

REPORT INFORMATION
  Report Type: Spontaneous
  Country: US (occurrence: US)
  Receive Date: 20160512
  Receipt Date: 20160512
  Transmission Date: 20160815
  Serious: No
  Sender: FDA-Public Use
  Company Number: US-UCBSA-2015027745

PATIENT
  Age: 49 Year
  Sex: Female

DRUGS (2)
  1. CIMZIA [Suspect]
     Active Substance: CERTOLIZUMAB PEGOL
     Indication: RHEUMATOID ARTHRITIS
     Dosage: 200 MG, EV 2 WEEKS(QOW)
     Dates: start: 201507, end: 20150823
  2. HUMIRA [Concomitant]
     Active Substance: ADALIMUMAB
     Indication: PRODUCT USED FOR UNKNOWN INDICATION

REACTIONS (8)
  - Neck mass [Not Recovered/Not Resolved]
  - Mass [Not Recovered/Not Resolved]
  - Influenza [Not Recovered/Not Resolved]
  - Biopsy [Not Recovered/Not Resolved]
  - Malaise [Not Recovered/Not Resolved]
  - Incorrect product formulation administered [Unknown]
  - Animal scratch [Not Recovered/Not Resolved]
  - Upper extremity mass [Not Recovered/Not Resolved]

NARRATIVE: CASE EVENT DATE: 2015
